FAERS Safety Report 6007522-0 (Version None)
Quarter: 2008Q4

REPORT INFORMATION
  Report Type: 
  Country: None (occurrence: None)
  Receive Date: 20081217
  Receipt Date: 20080718
  Transmission Date: 20090506
  Serious: No
  Sender: FDA-Public Use
  Company Number: US-ASTRAZENECA-2008UW09122

PATIENT
  Age: 80 Year
  Sex: Female

DRUGS (5)
  1. CRESTOR [Suspect]
     Indication: BLOOD CHOLESTEROL INCREASED
     Route: 048
     Dates: start: 20080501
  2. VITAMINS [Concomitant]
  3. AMLODIPINE [Concomitant]
  4. ZOLOFT [Concomitant]
  5. VALIUM [Concomitant]

REACTIONS (5)
  - DRY MOUTH [None]
  - FATIGUE [None]
  - FEELING ABNORMAL [None]
  - PAIN IN EXTREMITY [None]
  - SOMNOLENCE [None]
